FAERS Safety Report 6264668-X (Version None)
Quarter: 2009Q3

REPORT INFORMATION
  Report Type: 
  Country: None (occurrence: None)
  Receive Date: 20090710
  Receipt Date: 20090702
  Transmission Date: 20100115
  Serious: Yes (Hospitalization, Other)
  Sender: FDA-Public Use
  Company Number: PHHO2009US08362

PATIENT
  Age: 43 Year
  Sex: Male
  Weight: 108.84 kg

DRUGS (3)
  1. ALDESLEUKIN C-ALDE+INJ [Suspect]
     Indication: METASTATIC MALIGNANT MELANOMA
     Dosage: 64.8 MIL UNITS Q 8 HRS X 5D
     Route: 042
     Dates: start: 20090311
  2. SORAFENIB [Suspect]
     Dosage: 200 MG, BID
     Route: 048
     Dates: start: 20090408
  3. ANTIBIOTICS [Suspect]

REACTIONS (11)
  - BACK PAIN [None]
  - CARDIAC MURMUR [None]
  - CENTRAL VENOUS CATHETER REMOVAL [None]
  - DIARRHOEA [None]
  - DYSPNOEA [None]
  - LUNG DISORDER [None]
  - MITRAL VALVE DISEASE [None]
  - PYREXIA [None]
  - RASH [None]
  - STAPHYLOCOCCAL BACTERAEMIA [None]
  - WHITE BLOOD CELL COUNT INCREASED [None]
